FAERS Safety Report 7894382-6 (Version None)
Quarter: 2011Q4

REPORT INFORMATION
  Report Type: 
  Country: None (occurrence: None)
  Receive Date: 20111104
  Receipt Date: 20111031
  Transmission Date: 20120403
  Serious: Yes (Life-Threatening, Other)
  Sender: FDA-Public Use
  Company Number: US-ASTRAZENECA-2011SE64363

PATIENT
  Age: 72 Year
  Sex: Male

DRUGS (3)
  1. ATACAND [Suspect]
     Route: 048
  2. NEXIUM [Suspect]
     Route: 048
  3. TOPROL-XL [Suspect]
     Route: 048

REACTIONS (2)
  - INFECTION [None]
  - APPARENT DEATH [None]
